FAERS Safety Report 19036973 (Version 2)
Quarter: 2021Q2

REPORT INFORMATION
  Report Type: Spontaneous
  Country: FR (occurrence: FR)
  Receive Date: 20210322
  Receipt Date: 20210510
  Transmission Date: 20210717
  Serious: Yes (Hospitalization, Other)
  Sender: FDA-Public Use
  Company Number: FR-AMGEN-FRASP2021042230

PATIENT
  Age: 67 Year
  Sex: Female

DRUGS (2)
  1. PROCORALAN [Suspect]
     Active Substance: IVABRADINE
     Indication: SINUS TACHYCARDIA
     Dosage: 7.5 MILLIGRAM, BID
     Route: 048
     Dates: start: 2003, end: 20210325
  2. PROCORALAN [Suspect]
     Active Substance: IVABRADINE
     Indication: OFF LABEL USE
     Dosage: UNK
     Route: 065

REACTIONS (3)
  - Visual acuity reduced [Recovering/Resolving]
  - Photopsia [Not Recovered/Not Resolved]
  - Macular hole [Recovering/Resolving]

NARRATIVE: CASE EVENT DATE: 2020
